FAERS Safety Report 4333839-1 (Version None)
Quarter: 2004Q2

REPORT INFORMATION
  Report Type: 
  Country: None (occurrence: None)
  Receive Date: 20040402
  Receipt Date: 20040329
  Transmission Date: 20050107
  Serious: Yes (Other)
  Sender: FDA-Public Use
  Company Number: 2004-03-1983

PATIENT
  Sex: Female

DRUGS (2)
  1. PEG-INTRON [Suspect]
  2. REBETOL [Suspect]

REACTIONS (1)
  - PULMONARY FIBROSIS [None]
